FAERS Safety Report 21698491 (Version 2)
Quarter: 2023Q1

REPORT INFORMATION
  Report Type: Spontaneous
  Country: US (occurrence: US)
  Receive Date: 20221208
  Receipt Date: 20230220
  Transmission Date: 20230417
  Serious: No
  Sender: FDA-Public Use
  Company Number: US-BRISTOL-MYERS SQUIBB COMPANY-2022-149825

PATIENT
  Age: 60 Year
  Sex: Male

DRUGS (2)
  1. REVLIMID [Suspect]
     Active Substance: LENALIDOMIDE
     Indication: Plasma cell myeloma
     Dosage: FREQ: 1 CAPSULE MONDAY THROUGH FRIDAY, NO WEEKEND DOSING
     Route: 048
     Dates: start: 20210430
  2. REVLIMID [Suspect]
     Active Substance: LENALIDOMIDE
     Dosage: FREQ: 1 CAPSULE MONDAY - FRIDAY ONLY
     Route: 048

REACTIONS (3)
  - Skin infection [Unknown]
  - Furuncle [Unknown]
  - Off label use [Unknown]
